FAERS Safety Report 16713072 (Version 1)
Quarter: 2019Q3

REPORT INFORMATION
  Report Type: Spontaneous
  Country: GB (occurrence: GB)
  Receive Date: 20190817
  Receipt Date: 20190817
  Transmission Date: 20191004
  Serious: Yes (Other)
  Sender: FDA-Public Use
  Company Number: GB-ACCORD-151664

PATIENT
  Age: 43 Year
  Sex: Male
  Weight: 85.72 kg

DRUGS (2)
  1. ACCORD HEALTHCARE ALLOPURINOL [Suspect]
     Active Substance: ALLOPURINOL
     Indication: GOUT
     Route: 048
     Dates: start: 20190612, end: 20190629
  2. IBUPROFEN. [Concomitant]
     Active Substance: IBUPROFEN

REACTIONS (5)
  - Headache [Not Recovered/Not Resolved]
  - Pain in extremity [Not Recovered/Not Resolved]
  - Pruritus generalised [Not Recovered/Not Resolved]
  - Abdominal discomfort [Not Recovered/Not Resolved]
  - Paraesthesia [Not Recovered/Not Resolved]

NARRATIVE: CASE EVENT DATE: 20190615
